FAERS Safety Report 16043927 (Version 2)
Quarter: 2020Q1

REPORT INFORMATION
  Report Type: Spontaneous
  Country: GB (occurrence: GB)
  Receive Date: 20190306
  Receipt Date: 20200123
  Transmission Date: 20200409
  Serious: Yes (Other)
  Sender: FDA-Public Use
  Company Number: GB-TEVA-2019-GB-1019474

PATIENT
  Age: 76 Year
  Sex: Female

DRUGS (2)
  1. MEMANTINE. [Suspect]
     Active Substance: MEMANTINE
     Dosage: 20 MILLIGRAM DAILY;
     Route: 048
     Dates: start: 20180421, end: 20180422
  2. RIVASTIGMINE. [Suspect]
     Active Substance: RIVASTIGMINE
     Dates: start: 20180420, end: 20180422

REACTIONS (3)
  - Vomiting [Unknown]
  - Accidental overdose [Unknown]
  - Hyperhidrosis [Unknown]

NARRATIVE: CASE EVENT DATE: 201804
